FAERS Safety Report 5303323-7 (Version None)
Quarter: 2007Q2

REPORT INFORMATION
  Report Type: 
  Country: None (occurrence: None)
  Receive Date: 20070420
  Receipt Date: 20070412
  Transmission Date: 20071010
  Serious: Yes (Life-Threatening, Hospitalization, Other)
  Sender: FDA-Public Use
  Company Number: GB-GLAXOSMITHKLINE-B0467054A

PATIENT
  Age: 54 Year
  Sex: Male
  Weight: 83 kg

DRUGS (8)
  1. AMOXICILLIN [Suspect]
     Dosage: 250MG THREE TIMES PER DAY
     Route: 048
     Dates: start: 20070305
  2. BENDROFLUMETHIAZIDE [Suspect]
     Indication: HYPERTENSION
     Dosage: 2.5MG PER DAY
     Route: 048
     Dates: end: 20070301
  3. BEZAFIBRATE [Suspect]
     Dosage: 400MG PER DAY
     Route: 048
     Dates: end: 20070301
  4. ATENOLOL [Concomitant]
     Indication: HYPERTENSION
     Dosage: 100MG PER DAY
     Route: 048
     Dates: end: 20070301
  5. DOXAZOSIN MESYLATE [Concomitant]
     Indication: HYPERTENSION
     Dosage: 8MG PER DAY
     Route: 048
     Dates: end: 20070301
  6. LANSOPRAZOLE [Concomitant]
     Indication: HYPERTENSION
     Dosage: 15MG PER DAY
     Route: 048
     Dates: start: 20060101, end: 20070301
  7. PANTOPRAZOLE [Concomitant]
     Indication: HYPERTENSION
     Route: 042
     Dates: start: 20070301
  8. IRBESARTAN [Concomitant]
     Indication: HYPERTENSION
     Dosage: 300MG PER DAY
     Route: 048
     Dates: end: 20070301

REACTIONS (1)
  - PANCREATITIS ACUTE [None]
